FAERS Safety Report 7079734-9 (Version None)
Quarter: 2010Q4

REPORT INFORMATION
  Report Type: 
  Country: None (occurrence: None)
  Receive Date: 20101102
  Receipt Date: 20101019
  Transmission Date: 20110411
  Serious: Yes (Hospitalization, Other)
  Sender: FDA-Public Use
  Company Number: US-AMGEN-QUU430664

PATIENT

DRUGS (6)
  1. NPLATE [Suspect]
     Indication: IDIOPATHIC THROMBOCYTOPENIC PURPURA
     Dosage: 6 A?G/KG, Q2WK
     Route: 058
     Dates: start: 20100215, end: 20100816
  2. NPLATE [Suspect]
     Dates: start: 20100215
  3. NPLATE [Suspect]
     Dates: start: 20100215
  4. ACETAMINOPHEN [Concomitant]
     Dosage: 325 MG, UNK
     Route: 048
     Dates: start: 20100801
  5. IRON DEXTRAN [Concomitant]
     Dosage: 150 MG, QD
  6. CORTICOSTEROID NOS [Concomitant]
     Dosage: UNK UNK, UNK
     Dates: start: 20090106, end: 20090715

REACTIONS (6)
  - DRUG INEFFECTIVE [None]
  - MUCOSAL HAEMORRHAGE [None]
  - MUSCULOSKELETAL DISORDER [None]
  - PETECHIAE [None]
  - PURPURA [None]
  - THERAPEUTIC RESPONSE DECREASED [None]
